FAERS Safety Report 13801429 (Version 1)
Quarter: 2017Q3

REPORT INFORMATION
  Report Type: Spontaneous
  Country: US (occurrence: US)
  Receive Date: 20170727
  Receipt Date: 20170727
  Transmission Date: 20171127
  Serious: No
  Sender: FDA-Public Use
  Company Number: US-SEBELA IRELAND LIMITED-2016SEB01516

PATIENT
  Sex: Female
  Weight: 56.69 kg

DRUGS (3)
  1. BRISDELLE [Suspect]
     Active Substance: PAROXETINE MESYLATE
     Indication: HOT FLUSH
     Dosage: 7.5 MG, 1X/DAY
     Route: 048
     Dates: start: 201507, end: 201511
  2. MULTIVITAMIN [Concomitant]
     Active Substance: VITAMINS
  3. BRISDELLE [Suspect]
     Active Substance: PAROXETINE MESYLATE
     Dosage: 7.5 MG, 1X/DAY
     Route: 048
     Dates: start: 201512, end: 201604

REACTIONS (12)
  - Tinnitus [Not Recovered/Not Resolved]
  - Fatigue [Not Recovered/Not Resolved]
  - Muscular weakness [Not Recovered/Not Resolved]
  - Adverse drug reaction [Not Recovered/Not Resolved]
  - Immune-mediated adverse reaction [Not Recovered/Not Resolved]
  - Dizziness [Not Recovered/Not Resolved]
  - Nightmare [Not Recovered/Not Resolved]
  - Feeling abnormal [Not Recovered/Not Resolved]
  - Drug ineffective [Recovered/Resolved]
  - Night sweats [Not Recovered/Not Resolved]
  - Arthralgia [Not Recovered/Not Resolved]
  - Rash [Not Recovered/Not Resolved]

NARRATIVE: CASE EVENT DATE: 2015
